FAERS Safety Report 11336777 (Version 1)
Quarter: 2015Q3

REPORT INFORMATION
  Report Type: Spontaneous
  Country: US (occurrence: US)
  Receive Date: 20150804
  Receipt Date: 20150804
  Transmission Date: 20151125
  Serious: No
  Sender: FDA-Public Use
  Company Number: US-BAYER-2015-393067

PATIENT
  Age: 72 Year
  Sex: Female
  Weight: 59.86 kg

DRUGS (3)
  1. VITAMIN B12 [Concomitant]
     Active Substance: CYANOCOBALAMIN
  2. ALEVE [Suspect]
     Active Substance: NAPROXEN SODIUM
     Indication: BACK PAIN
     Dosage: 1 DF, BID
     Route: 048
     Dates: start: 201504
  3. ALEVE [Suspect]
     Active Substance: NAPROXEN SODIUM
     Indication: ARTHRALGIA

REACTIONS (1)
  - Drug ineffective [Unknown]

NARRATIVE: CASE EVENT DATE: 201504
